FAERS Safety Report 16423022 (Version 1)
Quarter: 2019Q2

REPORT INFORMATION
  Report Type: Spontaneous
  Country: US (occurrence: US)
  Receive Date: 20190612
  Receipt Date: 20190612
  Transmission Date: 20190711
  Serious: Yes (Other)
  Sender: FDA-Public Use
  Company Number: US-PFIZER INC-2019245149

PATIENT
  Age: 62 Year
  Sex: Male
  Weight: 120 kg

DRUGS (3)
  1. GABAPENTIN. [Suspect]
     Active Substance: GABAPENTIN
     Dosage: 300 MG, AS NEEDED (THREE TIMES A DAY AND ONE BEFORE BED IF NECESSARY)
  2. GABAPENTIN. [Suspect]
     Active Substance: GABAPENTIN
     Indication: DIABETIC NEUROPATHY
     Dosage: UNK
  3. CRESTOR [Concomitant]
     Active Substance: ROSUVASTATIN CALCIUM
     Indication: BLOOD CHOLESTEROL INCREASED
     Dosage: UNK

REACTIONS (6)
  - Weight increased [Not Recovered/Not Resolved]
  - Breakthrough pain [Recovering/Resolving]
  - Product use in unapproved indication [Unknown]
  - Insomnia [Unknown]
  - Drug ineffective [Unknown]
  - Off label use [Unknown]
